FAERS Safety Report 25427572 (Version 1)
Quarter: 2025Q2

REPORT INFORMATION
  Report Type: Report from Study
  Country: ES (occurrence: None)
  Receive Date: 20250612
  Receipt Date: 20250612
  Transmission Date: 20250717
  Serious: Yes (Other)
  Sender: ENCUBE ETHICALS
  Company Number: ES-Encube-001910

PATIENT
  Age: 33 Year
  Sex: Female

DRUGS (2)
  1. TESTOSTERONE [Suspect]
     Active Substance: TESTOSTERONE
     Indication: Gender dysphoria
  2. TESTOSTERONE [Suspect]
     Active Substance: TESTOSTERONE
     Indication: Hormone replacement therapy

REACTIONS (2)
  - Suicide attempt [Unknown]
  - Off label use [Unknown]
